FAERS Safety Report 8275981-9 (Version None)
Quarter: 2012Q2

REPORT INFORMATION
  Report Type: 
  Country: None (occurrence: None)
  Receive Date: 20120412
  Receipt Date: 20120409
  Transmission Date: 20120825
  Serious: No
  Sender: FDA-Public Use
  Company Number: US-PFIZER INC-2012076140

PATIENT
  Sex: Female
  Weight: 63.492 kg

DRUGS (4)
  1. PRILOSEC [Concomitant]
     Dosage: UNK, 1X/DAY
  2. VITAMIN D [Concomitant]
     Dosage: UNK, DAILY
  3. PREMARIN [Suspect]
     Indication: HOT FLUSH
     Dosage: UNK
     Route: 048
     Dates: start: 19910101, end: 20080101
  4. PREMARIN [Suspect]
     Indication: ATROPHIC VULVOVAGINITIS
     Dosage: 0.625 G, 1X/DAY
     Route: 067
     Dates: start: 20090101

REACTIONS (4)
  - VITAMIN D DECREASED [None]
  - FATIGUE [None]
  - HOT FLUSH [None]
  - DRUG EFFECT DECREASED [None]
